FAERS Safety Report 16238482 (Version 4)
Quarter: 2019Q3

REPORT INFORMATION
  Report Type: Spontaneous
  Country: JP (occurrence: JP)
  Receive Date: 20190425
  Receipt Date: 20190809
  Transmission Date: 20191004
  Serious: Yes (Other)
  Sender: FDA-Public Use
  Company Number: PHJP2019JP004764

PATIENT
  Age: 34 Year
  Sex: Male

DRUGS (6)
  1. XYZAL [Concomitant]
     Active Substance: LEVOCETIRIZINE DIHYDROCHLORIDE
     Indication: PRODUCT USED FOR UNKNOWN INDICATION
     Dosage: UNK
     Route: 048
     Dates: start: 20190329, end: 20190403
  2. BILASTINE [Concomitant]
     Active Substance: BILASTINE
     Indication: PSORIASIS
     Dosage: UNK
     Route: 048
     Dates: start: 20190409
  3. TALION [Concomitant]
     Indication: PSORIASIS
     Dosage: UNK
     Route: 048
     Dates: start: 20190409
  4. COSENTYX [Suspect]
     Active Substance: SECUKINUMAB
     Dosage: 300 MG, 4W
     Route: 058
     Dates: start: 20150820
  5. MYSER [Concomitant]
     Indication: PRODUCT USED FOR UNKNOWN INDICATION
     Dosage: UNK
     Route: 061
     Dates: start: 20190329, end: 20190403
  6. COSENTYX [Suspect]
     Active Substance: SECUKINUMAB
     Indication: PSORIASIS
     Dosage: 300 MG, QW
     Route: 058
     Dates: start: 20150625, end: 20150723

REACTIONS (8)
  - Rash [Unknown]
  - Toxic skin eruption [Recovered/Resolved]
  - Skin exfoliation [Unknown]
  - Pruritus [Unknown]
  - Rash erythematous [Unknown]
  - Erythema [Unknown]
  - Urticaria [Unknown]
  - Papule [Unknown]

NARRATIVE: CASE EVENT DATE: 201903
